FAERS Safety Report 7472175-1 (Version None)
Quarter: 2011Q2

REPORT INFORMATION
  Report Type: 
  Country: None (occurrence: None)
  Receive Date: 20110511
  Receipt Date: 20110222
  Transmission Date: 20111010
  Serious: No
  Sender: FDA-Public Use
  Company Number: A0914890A

PATIENT
  Age: 56 Year
  Sex: Female

DRUGS (6)
  1. HYDROCODONE BITARTRATE [Concomitant]
  2. MULTI-VITAMIN [Concomitant]
  3. TYKERB [Suspect]
     Dosage: 5TAB PER DAY
     Route: 048
     Dates: start: 20110210
  4. CYMBALTA [Concomitant]
  5. CITRACAL [Concomitant]
  6. PRILOSEC [Concomitant]

REACTIONS (2)
  - RASH [None]
  - DIARRHOEA [None]
